FAERS Safety Report 14069224 (Version 2)
Quarter: 2018Q1

REPORT INFORMATION
  Report Type: Spontaneous
  Country: US (occurrence: US)
  Receive Date: 20171010
  Receipt Date: 20180104
  Transmission Date: 20180508
  Serious: No
  Sender: FDA-Public Use
  Company Number: US-LUNDBECK-DKLU2037842

PATIENT
  Age: 84 Year
  Sex: Male

DRUGS (3)
  1. NORTHERA [Suspect]
     Active Substance: DROXIDOPA
     Indication: SYNCOPE
  2. NORTHERA [Suspect]
     Active Substance: DROXIDOPA
     Indication: PARKINSON^S DISEASE
     Dosage: SCHEDULE B AND TITRATING
     Route: 048
     Dates: start: 20170920
  3. NORTHERA [Suspect]
     Active Substance: DROXIDOPA
     Indication: ORTHOSTATIC HYPOTENSION
     Dosage: TITRATION DOSE UP TO 600 MG TID
     Route: 048
     Dates: start: 20170914, end: 20171005

REACTIONS (6)
  - Headache [Unknown]
  - Asthenopia [Unknown]
  - Dyskinesia [Unknown]
  - Feeling abnormal [Unknown]
  - Dizziness [Unknown]
  - Dysstasia [Unknown]

NARRATIVE: CASE EVENT DATE: 20170921
